FAERS Safety Report 12906703 (Version 1)
Quarter: 2016Q4

REPORT INFORMATION
  Report Type: Spontaneous
  Country: US (occurrence: US)
  Receive Date: 20161101
  Receipt Date: 20161101
  Transmission Date: 20170207
  Serious: No
  Sender: FDA-Public Use
  Company Number: None

PATIENT
  Age: 47 Year
  Sex: Female
  Weight: 70.65 kg

DRUGS (9)
  1. LEVOTHYROXINE. [Concomitant]
     Active Substance: LEVOTHYROXINE
  2. ZYRTEC [Concomitant]
     Active Substance: CETIRIZINE HYDROCHLORIDE
  3. WOMEN^S ONE-A-DAY [Concomitant]
  4. LANTUS [Concomitant]
     Active Substance: INSULIN GLARGINE
  5. HUMALOG [Concomitant]
     Active Substance: INSULIN LISPRO
  6. PAROXETINE. [Concomitant]
     Active Substance: PAROXETINE
  7. FLONASE [Concomitant]
     Active Substance: FLUTICASONE PROPIONATE
  8. CLOTRIMAZOLE TOPICAL SOLUTION 1% TARO [Suspect]
     Active Substance: CLOTRIMAZOLE
     Indication: TYMPANIC MEMBRANE PERFORATION
     Route: 001
     Dates: start: 20161021, end: 20161024
  9. CLOTRIMAZOLE TOPICAL SOLUTION 1% TARO [Suspect]
     Active Substance: CLOTRIMAZOLE
     Indication: OTITIS MEDIA
     Route: 001
     Dates: start: 20161021, end: 20161024

REACTIONS (3)
  - Ear pain [None]
  - Ear discomfort [None]
  - Product formulation issue [None]

NARRATIVE: CASE EVENT DATE: 20161022
